FAERS Safety Report 25545617 (Version 1)
Quarter: 2025Q3

REPORT INFORMATION
  Report Type: Spontaneous
  Country: US (occurrence: US)
  Receive Date: 20250712
  Receipt Date: 20250712
  Transmission Date: 20251020
  Serious: No
  Sender: SANOFI AVENTIS
  Company Number: US-SA-2025SA194426

PATIENT
  Age: 27 Year
  Sex: Female

DRUGS (11)
  1. DUPIXENT [Suspect]
     Active Substance: DUPILUMAB
     Indication: Dermatitis atopic
     Route: 058
     Dates: start: 20250224, end: 20250707
  2. ALPRAZOLAM [Concomitant]
     Active Substance: ALPRAZOLAM
  3. CYCLOBENZAPRINE [Concomitant]
     Active Substance: CYCLOBENZAPRINE
  4. LITHIUM [Concomitant]
     Active Substance: LITHIUM
  5. LAMOTRIGINE [Concomitant]
     Active Substance: LAMOTRIGINE
  6. LORAZEPAM [Concomitant]
     Active Substance: LORAZEPAM
  7. VILAZODONE [Concomitant]
     Active Substance: VILAZODONE
  8. PROPRANOLOL [Concomitant]
     Active Substance: PROPRANOLOL HYDROCHLORIDE
  9. PROGESTERONE [Concomitant]
     Active Substance: PROGESTERONE
  10. PRAZOSIN [Concomitant]
     Active Substance: PRAZOSIN
  11. VITAMIN D3 [Concomitant]
     Active Substance: CHOLECALCIFEROL

REACTIONS (2)
  - Drug ineffective [Unknown]
  - Injection site pain [Unknown]

NARRATIVE: CASE EVENT DATE: 20250101
